FAERS Safety Report 20652992 (Version 5)
Quarter: 2023Q2

REPORT INFORMATION
  Report Type: Spontaneous
  Country: JP (occurrence: JP)
  Receive Date: 20220330
  Receipt Date: 20230629
  Transmission Date: 20230721
  Serious: Yes (Hospitalization, Other)
  Sender: FDA-Public Use
  Company Number: JP-UCBJ-CD202202463UCBPHAPROD

PATIENT
  Age: 75 Year
  Sex: Male
  Weight: 58.3 kg

DRUGS (10)
  1. CIMZIA [Suspect]
     Active Substance: CERTOLIZUMAB PEGOL
     Indication: Rheumatoid arthritis
     Dosage: 200 MILLIGRAM, MONTHLY (QM)
     Route: 058
     Dates: start: 20211002, end: 20220219
  2. METHOTREXATE [Concomitant]
     Active Substance: METHOTREXATE
     Indication: Product used for unknown indication
     Dosage: 10 MILLIGRAM, ONCE DAILY (QD)
     Route: 048
     Dates: end: 20220331
  3. AZULFIDINE EN-TABS [Concomitant]
     Active Substance: SULFASALAZINE
     Indication: Product used for unknown indication
     Dosage: 1 GRAM, ONCE DAILY (QD)
     Route: 048
  4. AZULFIDINE EN-TABS [Concomitant]
     Active Substance: SULFASALAZINE
     Dosage: 500 MILLIGRAM, ONCE DAILY (QD)
     Route: 048
  5. RHEUMATREX [Concomitant]
     Active Substance: METHOTREXATE SODIUM
     Indication: Product used for unknown indication
     Dosage: 10 MILLIGRAM, WEEKLY (QW)
     Route: 048
     Dates: end: 20220331
  6. FOLIC ACID [Concomitant]
     Active Substance: FOLIC ACID
     Indication: Product used for unknown indication
     Dosage: 5 MILLIGRAM
     Dates: end: 20220401
  7. AMLODIPINE [Concomitant]
     Active Substance: AMLODIPINE BESYLATE
     Indication: Product used for unknown indication
     Dosage: 2.5 MILLIGRAM, ONCE DAILY (QD)
  8. PREDONINE [Concomitant]
     Active Substance: PREDNISOLONE
     Indication: Product used for unknown indication
     Dosage: 2.5 MILLIGRAM, ONCE DAILY (QD)
  9. FUROSEMIDE [Concomitant]
     Active Substance: FUROSEMIDE
     Indication: Product used for unknown indication
     Dosage: 20 MILLIGRAM, ONCE DAILY (QD)
     Dates: end: 20220317
  10. CARBOCYSTEINE [Concomitant]
     Active Substance: CARBOCYSTEINE
     Indication: Product used for unknown indication
     Dosage: 500 MILLIGRAM, 3X/DAY (TID)
     Dates: end: 20220407

REACTIONS (4)
  - Organising pneumonia [Recovering/Resolving]
  - Cardiac failure congestive [Recovering/Resolving]
  - Rheumatoid arthritis [Recovered/Resolved]
  - Off label use [Unknown]

NARRATIVE: CASE EVENT DATE: 20220309
